APPROVED DRUG PRODUCT: NASCOBAL
Active Ingredient: CYANOCOBALAMIN
Strength: 0.5MG/INH
Dosage Form/Route: GEL, METERED;NASAL
Application: N019722 | Product #001
Applicant: ENDO OPERATIONS LTD
Approved: Nov 5, 1996 | RLD: No | RS: No | Type: DISCN